FAERS Safety Report 9901098 (Version 5)
Quarter: 2014Q4

REPORT INFORMATION
  Report Type: Spontaneous
  Country: US (occurrence: US)
  Receive Date: 20140217
  Receipt Date: 20141128
  Transmission Date: 20150529
  Serious: Yes (Other)
  Sender: FDA-Public Use
  Company Number: US-PFIZER INC-2014039049

PATIENT
  Age: 69 Year
  Sex: Female
  Weight: 64 kg

DRUGS (4)
  1. PROVERA [Suspect]
     Active Substance: MEDROXYPROGESTERONE ACETATE
     Dosage: UNK
     Dates: start: 1994, end: 2007
  2. PROVERA [Suspect]
     Active Substance: MEDROXYPROGESTERONE ACETATE
     Dosage: UNK
     Dates: start: 2007
  3. PREMARIN [Suspect]
     Active Substance: ESTROGENS, CONJUGATED
     Dosage: UNK
     Dates: start: 2007
  4. PREMARIN [Suspect]
     Active Substance: ESTROGENS, CONJUGATED
     Dosage: UNK
     Dates: start: 1994, end: 2007

REACTIONS (9)
  - Functional gastrointestinal disorder [Unknown]
  - Muscle spasms [Unknown]
  - Vaginal infection [Unknown]
  - Feeding disorder [Unknown]
  - Dyspepsia [Unknown]
  - Insomnia [Unknown]
  - Weight decreased [Unknown]
  - Malaise [Unknown]
  - Hormone level abnormal [Unknown]
